FAERS Safety Report 21282801 (Version 1)
Quarter: 2022Q3

REPORT INFORMATION
  Report Type: 
  Country: US (occurrence: US)
  Receive Date: 20220901
  Receipt Date: 20220901
  Transmission Date: 20221026
  Serious: Yes (Hospitalization)
  Sender: FDA-Public Use
  Company Number: US-C B Fleet Co Inc-202208-US-002619

PATIENT
  Age: 41 Year
  Sex: Male

DRUGS (6)
  1. BC ARTHRITIS [Suspect]
     Active Substance: ASPIRIN\CAFFEINE
     Indication: Migraine
     Dosage: UNKNOWN
     Route: 048
  2. METHOCARBAMOL [Concomitant]
     Active Substance: METHOCARBAMOL
     Dosage: BID
  3. FUROSEMIDE [Concomitant]
     Active Substance: FUROSEMIDE
     Dosage: QD
  4. MODAFINIL [Concomitant]
     Active Substance: MODAFINIL
     Dosage: QD AM
  5. POTASSIUM CHLORIDE [Concomitant]
     Active Substance: POTASSIUM CHLORIDE
     Dosage: QD
  6. MELOXICAM [Concomitant]
     Active Substance: MELOXICAM
     Dosage: QD PRN

REACTIONS (2)
  - Gastritis [Not Recovered/Not Resolved]
  - Peptic ulcer [Not Recovered/Not Resolved]
